FAERS Safety Report 24217823 (Version 1)
Quarter: 2024Q3

REPORT INFORMATION
  Report Type: Spontaneous
  Country: FR (occurrence: FR)
  Receive Date: 20240816
  Receipt Date: 20240816
  Transmission Date: 20241016
  Serious: Yes (Death)
  Sender: MYLAN
  Company Number: None

PATIENT
  Age: 50 Year
  Sex: Female

DRUGS (2)
  1. CLOMIPRAMINE [Interacting]
     Active Substance: CLOMIPRAMINE
     Indication: Depression
     Dosage: 1 DOSAGE FORM, QD (LONG COURSE)
     Route: 048
  2. AJMALINE HYDROCHLORIDE [Interacting]
     Active Substance: AJMALINE HYDROCHLORIDE
     Indication: Cardiac function test
     Dosage: 45 MILLIGRAM, 1 TOTAL (5MG/ML IN SLOW IV, 1MG/KG OVER 5MIN I.E. A TOTAL OF 95MG EXPECTED)
     Route: 042
     Dates: start: 20240329, end: 20240329

REACTIONS (2)
  - Cardio-respiratory arrest [Fatal]
  - Drug interaction [Unknown]

NARRATIVE: CASE EVENT DATE: 20240329
